FAERS Safety Report 18184211 (Version 3)
Quarter: 2020Q3

REPORT INFORMATION
  Report Type: Spontaneous
  Country: US (occurrence: US)
  Receive Date: 20200824
  Receipt Date: 20200831
  Transmission Date: 20201103
  Serious: No
  Sender: FDA-Public Use
  Company Number: US-ELI_LILLY_AND_COMPANY-US202008002715

PATIENT
  Age: 56 Year
  Sex: Female

DRUGS (4)
  1. TALTZ [Suspect]
     Active Substance: IXEKIZUMAB
     Indication: PSORIATIC ARTHROPATHY
     Dosage: 80 MG, BID LOADING DOSE
     Route: 058
     Dates: start: 20200805
  2. TALTZ [Suspect]
     Active Substance: IXEKIZUMAB
     Indication: PSORIASIS
     Dosage: 80 MG, BID LOADING DOSE
     Route: 058
     Dates: end: 20200805
  3. HUMIRA [Concomitant]
     Active Substance: ADALIMUMAB
     Indication: PRODUCT USED FOR UNKNOWN INDICATION
     Dosage: UNK UNK, UNKNOWN
     Route: 065
  4. KENALOG [Concomitant]
     Active Substance: TRIAMCINOLONE ACETONIDE
     Indication: PSORIATIC ARTHROPATHY
     Dosage: UNK UNK, UNKNOWN
     Route: 065

REACTIONS (41)
  - Somnolence [Unknown]
  - Diarrhoea [Not Recovered/Not Resolved]
  - Anxiety [Unknown]
  - Eyelid pain [Unknown]
  - Influenza like illness [Not Recovered/Not Resolved]
  - Injection site urticaria [Unknown]
  - Asthenia [Not Recovered/Not Resolved]
  - Dysphonia [Unknown]
  - Swollen tongue [Recovering/Resolving]
  - Headache [Not Recovered/Not Resolved]
  - Pain [Not Recovered/Not Resolved]
  - Depression [Unknown]
  - Obsessive-compulsive disorder [Unknown]
  - Erythema of eyelid [Unknown]
  - Swelling face [Recovering/Resolving]
  - Lip swelling [Recovering/Resolving]
  - Lethargy [Unknown]
  - Periorbital swelling [Unknown]
  - Feeling abnormal [Not Recovered/Not Resolved]
  - Dry eye [Unknown]
  - Urinary tract infection [Not Recovered/Not Resolved]
  - Dizziness [Unknown]
  - Myalgia [Unknown]
  - Feeling abnormal [Unknown]
  - Injection site pruritus [Unknown]
  - Eye swelling [Unknown]
  - Eye pruritus [Unknown]
  - Night sweats [Unknown]
  - Back pain [Not Recovered/Not Resolved]
  - Dysuria [Not Recovered/Not Resolved]
  - Sleep disorder [Unknown]
  - Decreased appetite [Unknown]
  - Peripheral swelling [Unknown]
  - Visual impairment [Unknown]
  - Periorbital swelling [Not Recovered/Not Resolved]
  - Arthralgia [Unknown]
  - Injection site pain [Unknown]
  - Injection site erythema [Recovering/Resolving]
  - Fatigue [Unknown]
  - Eye pain [Not Recovered/Not Resolved]
  - Nausea [Not Recovered/Not Resolved]

NARRATIVE: CASE EVENT DATE: 20200805
